FAERS Safety Report 12455602 (Version 1)
Quarter: 2016Q2

REPORT INFORMATION
  Report Type: Report from Study
  Country: US (occurrence: US)
  Receive Date: 20160610
  Receipt Date: 20160610
  Transmission Date: 20160815
  Serious: Yes (Other)
  Sender: FDA-Public Use
  Company Number: US-AMGEN-USASL2016072234

PATIENT
  Age: 63 Year
  Sex: Female

DRUGS (1)
  1. PROLIA [Suspect]
     Active Substance: DENOSUMAB
     Indication: OSTEOPOROSIS
     Dosage: 60 MG, Q6MO
     Route: 065
     Dates: start: 201511

REACTIONS (11)
  - Dyspepsia [Unknown]
  - Insomnia [Unknown]
  - Constipation [Unknown]
  - Flatulence [Unknown]
  - Anxiety [Unknown]
  - Dyspnoea [Unknown]
  - Weight decreased [Unknown]
  - Gastric infection [Unknown]
  - Skin mass [Unknown]
  - Injection site mass [Unknown]
  - Chest pain [Unknown]

NARRATIVE: CASE EVENT DATE: 201511
